FAERS Safety Report 9066998 (Version 1)
Quarter: 2013Q1

REPORT INFORMATION
  Report Type: Report from Study
  Country: US (occurrence: US)
  Receive Date: 20130214
  Receipt Date: 20130214
  Transmission Date: 20140127
  Serious: Yes (Hospitalization)
  Sender: FDA-Public Use
  Company Number: US-JNJFOC-20130113843

PATIENT
  Age: 14 None
  Sex: Female
  Weight: 43.8 kg

DRUGS (1)
  1. REMICADE [Suspect]
     Indication: CROHN^S DISEASE
     Route: 042
     Dates: start: 20090914, end: 20100527

REACTIONS (1)
  - Crohn^s disease [Not Recovered/Not Resolved]
